FAERS Safety Report 9896752 (Version 1)
Quarter: 2014Q1

REPORT INFORMATION
  Report Type: Spontaneous
  Country: IT (occurrence: IT)
  Receive Date: 20140213
  Receipt Date: 20140213
  Transmission Date: 20141002
  Serious: Yes (Hospitalization)
  Sender: FDA-Public Use
  Company Number: IT-BRISTOL-MYERS SQUIBB COMPANY-20130738

PATIENT
  Age: 77 Year
  Sex: Male

DRUGS (1)
  1. COUMADIN TABS 5 MG [Suspect]
     Indication: PULMONARY EMBOLISM
     Dosage: DRUG INTERRUPTED ON 13JAN2014
     Route: 048
     Dates: start: 20140101

REACTIONS (3)
  - Diverticulitis [Recovered/Resolved]
  - Pelvic pain [Recovered/Resolved]
  - Rectal haemorrhage [Recovered/Resolved]
